FAERS Safety Report 22353636 (Version 2)
Quarter: 2023Q2

REPORT INFORMATION
  Report Type: Spontaneous
  Country: US (occurrence: US)
  Receive Date: 20230523
  Receipt Date: 20230529
  Transmission Date: 20230722
  Serious: Yes (Other)
  Sender: FDA-Public Use
  Company Number: US-AMGEN-USASP2023085209

PATIENT
  Age: 74 Year
  Sex: Female

DRUGS (2)
  1. PROLIA [Suspect]
     Active Substance: DENOSUMAB
     Indication: Product used for unknown indication
     Dosage: UNK UNK, Q6MO
     Route: 065
     Dates: start: 2018
  2. TEZSPIRE [Concomitant]
     Active Substance: TEZEPELUMAB-EKKO
     Dosage: UNK

REACTIONS (10)
  - Spinal compression fracture [Unknown]
  - Therapeutic product effect incomplete [Unknown]
  - Road traffic accident [Unknown]
  - Mobility decreased [Unknown]
  - Bone disorder [Unknown]
  - Fracture [Unknown]
  - Hypertension [Unknown]
  - Insomnia [Unknown]
  - Dizziness [Unknown]
  - Intervertebral disc protrusion [Unknown]

NARRATIVE: CASE EVENT DATE: 20230101
